FAERS Safety Report 4565896-1 (Version None)
Quarter: 2005Q1

REPORT INFORMATION
  Report Type: 
  Country: None (occurrence: None)
  Receive Date: 20050131
  Receipt Date: 20050120
  Transmission Date: 20050727
  Serious: Yes (Hospitalization)
  Sender: FDA-Public Use
  Company Number: FR-AMGEN-UK106360

PATIENT
  Age: 48 Year
  Sex: Female
  Weight: 53 kg

DRUGS (8)
  1. KINERET [Suspect]
     Indication: DRUG USE FOR UNKNOWN INDICATION
     Dates: start: 20041216, end: 20050103
  2. ADRIAMYCIN PFS [Concomitant]
     Route: 065
     Dates: start: 20040901, end: 20041029
  3. CYCLOPHOSPHAMIDE [Concomitant]
     Route: 065
     Dates: start: 20040901, end: 20041029
  4. VINCRISTINE [Concomitant]
     Route: 065
     Dates: start: 20040901, end: 20041029
  5. PREDNISONE [Concomitant]
     Route: 065
     Dates: start: 20040901, end: 20041029
  6. PREDNISONE [Concomitant]
     Route: 065
     Dates: start: 20020101
  7. EPOGEN [Concomitant]
     Route: 058
     Dates: end: 20041211
  8. GRANULOCYTE MACROPHAGE COLONY STIM FACTOR [Concomitant]
     Route: 058
     Dates: end: 20041102

REACTIONS (6)
  - CARDIAC FAILURE [None]
  - CYTOLYTIC HEPATITIS [None]
  - EJECTION FRACTION DECREASED [None]
  - HEPATIC STEATOSIS [None]
  - HEPATITIS CHOLESTATIC [None]
  - TACHYCARDIA [None]
